FAERS Safety Report 25663205 (Version 2)
Quarter: 2025Q3

REPORT INFORMATION
  Report Type: Spontaneous
  Country: BR (occurrence: BR)
  Receive Date: 20250811
  Receipt Date: 20250902
  Transmission Date: 20251021
  Serious: Yes (Other)
  Sender: NOVO NORDISK
  Company Number: BR-NOVOPROD-1493830

PATIENT
  Age: 30 Year
  Sex: Female
  Weight: 73 kg

DRUGS (3)
  1. WEGOVY [Suspect]
     Active Substance: SEMAGLUTIDE
     Indication: Product used for unknown indication
     Dates: start: 202504
  2. ROSUVASTATIN [Concomitant]
     Active Substance: ROSUVASTATIN
     Indication: Product used for unknown indication
  3. ADOLESS [Concomitant]
     Indication: Product used for unknown indication

REACTIONS (1)
  - Vascular operation [Unknown]

NARRATIVE: CASE EVENT DATE: 20250701
